FAERS Safety Report 16340029 (Version 1)
Quarter: 2019Q2

REPORT INFORMATION
  Report Type: Report from Study
  Country: None (occurrence: US)
  Receive Date: 20190521
  Receipt Date: 20190521
  Transmission Date: 20190711
  Serious: Yes (Hospitalization)
  Sender: FDA-Public Use
  Company Number: US-ABBVIE-19K-163-2785315-00

PATIENT
  Age: 76 Year
  Sex: Female

DRUGS (1)
  1. HUMIRA [Suspect]
     Active Substance: ADALIMUMAB
     Indication: PSORIATIC ARTHROPATHY
     Route: 058
     Dates: start: 20181204

REACTIONS (10)
  - Diarrhoea [Recovering/Resolving]
  - Head injury [Recovering/Resolving]
  - Abdominal pain upper [Unknown]
  - Dizziness [Unknown]
  - Fall [Recovering/Resolving]
  - Product dispensing error [Unknown]
  - Acute kidney injury [Recovered/Resolved]
  - Gastric infection [Not Recovered/Not Resolved]
  - Asthenia [Unknown]
  - Fatigue [Recovering/Resolving]

NARRATIVE: CASE EVENT DATE: 2019
